FAERS Safety Report 5152320-3 (Version None)
Quarter: 2006Q4

REPORT INFORMATION
  Report Type: 
  Country: None (occurrence: None)
  Receive Date: 20061116
  Receipt Date: 20061019
  Transmission Date: 20070319
  Serious: Yes (Death, Hospitalization)
  Sender: FDA-Public Use
  Company Number: PHEH2006US13141

PATIENT
  Age: 67 Year
  Sex: Male

DRUGS (4)
  1. TOPROL-XL [Concomitant]
     Indication: HYPERTENSION
     Dosage: 100 MG, QD
     Route: 048
     Dates: end: 20060220
  2. PROCARDIA [Concomitant]
     Dosage: 30 MG, QD
     Route: 048
     Dates: end: 20060220
  3. AMOXICILLIN [Concomitant]
     Indication: TOOTH DISORDER
     Dosage: 250 MG, TID
     Route: 048
     Dates: start: 20060216, end: 20060217
  4. GLEEVEC [Suspect]
     Indication: GASTROINTESTINAL STROMAL TUMOUR
     Dosage: 400 MG, QD
     Route: 048
     Dates: start: 20031106

REACTIONS (15)
  - AORTIC VALVE SCLEROSIS [None]
  - CARDIAC FAILURE CONGESTIVE [None]
  - CARDIOMEGALY [None]
  - DEHYDRATION [None]
  - DYSPNOEA [None]
  - HEPATIC ENZYME INCREASED [None]
  - HEPATIC FAILURE [None]
  - INTUBATION [None]
  - MITRAL VALVE STENOSIS [None]
  - MULTI-ORGAN FAILURE [None]
  - PNEUMONIA [None]
  - PROTHROMBIN TIME PROLONGED [None]
  - RENAL FAILURE ACUTE [None]
  - RESPIRATORY FAILURE [None]
  - VENTRICULAR HYPERTROPHY [None]
